FAERS Safety Report 18685536 (Version 1)
Quarter: 2020Q4

REPORT INFORMATION
  Report Type: Spontaneous
  Country: US (occurrence: US)
  Receive Date: 20201231
  Receipt Date: 20201231
  Transmission Date: 20210114
  Serious: Yes (Death, Hospitalization, Other)
  Sender: FDA-Public Use
  Company Number: US-ASTRAZENECA-2020SF74286

PATIENT
  Age: 70 Year
  Sex: Female

DRUGS (6)
  1. DIGOXIN. [Suspect]
     Active Substance: DIGOXIN
     Dosage: UNKNOWN
     Route: 048
  2. MELOXICAM. [Suspect]
     Active Substance: MELOXICAM
     Dosage: UNKNOWN
     Route: 048
  3. OMEPRAZOLE (ER) [Suspect]
     Active Substance: OMEPRAZOLE
     Dosage: UNKNOWN
     Route: 048
  4. GABAPENTIN. [Suspect]
     Active Substance: GABAPENTIN
     Dosage: UNKNOWN
     Route: 048
  5. APIXIBAN [Suspect]
     Active Substance: APIXABAN
     Dosage: UNKNOWN
     Route: 048
  6. AMIODARONE [Suspect]
     Active Substance: AMIODARONE
     Dosage: UNKNOWN
     Route: 048

REACTIONS (3)
  - Toxicity to various agents [Fatal]
  - Completed suicide [Fatal]
  - Cardio-respiratory arrest [Unknown]
